FAERS Safety Report 25119448 (Version 1)
Quarter: 2025Q1

REPORT INFORMATION
  Report Type: Spontaneous
  Country: IL (occurrence: None)
  Receive Date: 20250325
  Receipt Date: 20250325
  Transmission Date: 20250408
  Serious: Yes (Other)
  Sender: INCYTE
  Company Number: IL-002147023-NVSC2025IL046349

PATIENT
  Age: 56 Year

DRUGS (1)
  1. RUXOLITINIB [Suspect]
     Active Substance: RUXOLITINIB
     Indication: Myelofibrosis

REACTIONS (4)
  - Hepatic lesion [Unknown]
  - Diarrhoea [Not Recovered/Not Resolved]
  - Pulmonary congestion [Unknown]
  - Splenic infarction [Unknown]
